FAERS Safety Report 8594055-0 (Version None)
Quarter: 2012Q3

REPORT INFORMATION
  Report Type: 
  Country: None (occurrence: None)
  Receive Date: 20120814
  Receipt Date: 20120731
  Transmission Date: 20120928
  Serious: Yes (Hospitalization)
  Sender: FDA-Public Use
  Company Number: PHHY2012FR069878

PATIENT

DRUGS (1)
  1. AMOXICILLIN AND CLAVULANATE POTASSIUM [Suspect]
     Indication: DIARRHOEA

REACTIONS (15)
  - GAIT DISTURBANCE [None]
  - FALL [None]
  - ASTHENIA [None]
  - LEUKOCYTOSIS [None]
  - POLYARTHRITIS [None]
  - ARTHRALGIA [None]
  - CLOSTRIDIAL INFECTION [None]
  - DIARRHOEA [None]
  - ARTHRITIS [None]
  - ABDOMINAL PAIN [None]
  - PYREXIA [None]
  - JOINT EFFUSION [None]
  - HYPOALBUMINAEMIA [None]
  - JOINT SWELLING [None]
  - MUSCULOSKELETAL PAIN [None]
